FAERS Safety Report 7893045-0 (Version None)
Quarter: 2011Q4

REPORT INFORMATION
  Report Type: 
  Country: None (occurrence: None)
  Receive Date: 20111104
  Receipt Date: 20110801
  Transmission Date: 20120403
  Serious: No
  Sender: FDA-Public Use
  Company Number: US-GLAXOSMITHKLINE-A0939271A

PATIENT
  Age: 76 Year
  Sex: Female

DRUGS (14)
  1. FISH OIL [Concomitant]
  2. HYDRALAZINE HCL [Concomitant]
  3. OMEPRAZOLE [Concomitant]
  4. CYMBALTA [Concomitant]
  5. VITAMIN D [Concomitant]
  6. POTASSIUM GLUTAMATE [Concomitant]
  7. CALCIUM [Concomitant]
  8. HORIZANT [Suspect]
     Indication: NEUROPATHY PERIPHERAL
     Dosage: 600MG PER DAY
     Route: 048
     Dates: start: 20110725
  9. VITAMIN E [Concomitant]
  10. ASPIRIN [Concomitant]
  11. THYROID MEDICATION [Concomitant]
  12. MAGNESIUM [Concomitant]
  13. ZINC [Concomitant]
  14. VITAMIN B-12 [Concomitant]

REACTIONS (3)
  - PARAESTHESIA [None]
  - OROPHARYNGEAL DISCOMFORT [None]
  - LIP SWELLING [None]
